FAERS Safety Report 23448696 (Version 1)
Quarter: 2024Q1

REPORT INFORMATION
  Report Type: Spontaneous
  Country: CN (occurrence: CN)
  Receive Date: 20240127
  Receipt Date: 20240127
  Transmission Date: 20240409
  Serious: Yes (Other)
  Sender: FDA-Public Use
  Company Number: CN-AMGEN-CHNSP2024015468

PATIENT
  Age: 60 Year
  Sex: Female

DRUGS (3)
  1. PROLIA [Suspect]
     Active Substance: DENOSUMAB
     Indication: Osteoporosis
     Dosage: 60 MILLIGRAM
     Route: 058
     Dates: start: 20220310
  2. PROLIA [Suspect]
     Active Substance: DENOSUMAB
     Dosage: 60 MILLIGRAM
     Route: 030
     Dates: start: 202302
  3. CALCIUM [Concomitant]
     Active Substance: CALCIUM

REACTIONS (6)
  - Spinal compression fracture [Not Recovered/Not Resolved]
  - Bone density decreased [Unknown]
  - Toothache [Not Recovered/Not Resolved]
  - COVID-19 [Unknown]
  - Incorrect route of product administration [Unknown]
  - Influenza [Unknown]

NARRATIVE: CASE EVENT DATE: 20220301
